FAERS Safety Report 10172869 (Version 1)
Quarter: 2014Q2

REPORT INFORMATION
  Report Type: Spontaneous
  Country: IT (occurrence: IT)
  Receive Date: 20140515
  Receipt Date: 20140515
  Transmission Date: 20141212
  Serious: Yes (Other)
  Sender: FDA-Public Use
  Company Number: IT-ACCORD-023486

PATIENT
  Age: 46 Year
  Sex: Female
  Weight: 75 kg

DRUGS (4)
  1. PACLITAXEL/PACLITAXEL LIPOSOME [Suspect]
     Indication: LUNG ADENOCARCINOMA
     Route: 042
     Dates: start: 20130620, end: 20130620
  2. CARBOPLATIN [Suspect]
     Indication: METASTATIC NEOPLASM
     Route: 065
     Dates: start: 20130809, end: 20130924
  3. BEVACIZUMAB [Suspect]
     Indication: METASTATIC NEOPLASM
     Route: 065
     Dates: start: 20130809, end: 20130924
  4. NAB PACLITAXEL [Suspect]
     Indication: METASTATIC NEOPLASM
     Dates: start: 20130809, end: 20130924

REACTIONS (10)
  - Cardiac fibrillation [Unknown]
  - Hypersensitivity [Unknown]
  - Paraesthesia [Unknown]
  - Vomiting [Unknown]
  - Rash pruritic [Recovered/Resolved]
  - Productive cough [Unknown]
  - Asthenia [Unknown]
  - Decreased appetite [Unknown]
  - Erythema [Recovered/Resolved]
  - Cardiac flutter [Unknown]
